FAERS Safety Report 4877731-2 (Version None)
Quarter: 2006Q1

REPORT INFORMATION
  Report Type: 
  Country: None (occurrence: None)
  Receive Date: 20060109
  Receipt Date: 20051227
  Transmission Date: 20060701
  Serious: Yes (Other)
  Sender: FDA-Public Use
  Company Number: 2006000252

PATIENT
  Age: 69 Year
  Sex: Female
  Weight: 72.5755 kg

DRUGS (8)
  1. LIPITOR [Suspect]
     Indication: BLOOD CHOLESTEROL INCREASED
     Dosage: 20 MG (20 MG, 1 IN 1 D)
     Dates: end: 20051101
  2. HYDROCORTISONE [Suspect]
     Indication: RASH
  3. ATENOLOL [Concomitant]
  4. THYROID TAB [Concomitant]
  5. FOSAMAX [Concomitant]
  6. TRIAMTERENE (TRIAMTERENE) [Concomitant]
  7. CALCIUM (CALCIUM) [Concomitant]
  8. VALSARTAN [Concomitant]

REACTIONS (7)
  - BLOOD CREATININE INCREASED [None]
  - BLOOD POTASSIUM INCREASED [None]
  - BLOOD UREA INCREASED [None]
  - BREAST CANCER [None]
  - HYPERTENSION [None]
  - MUSCLE SPASMS [None]
  - RASH [None]
